FAERS Safety Report 6879740-0 (Version None)
Quarter: 2010Q3

REPORT INFORMATION
  Report Type: 
  Country: None (occurrence: None)
  Receive Date: 20100728
  Receipt Date: 20100611
  Transmission Date: 20110219
  Serious: Yes (Death, Other)
  Sender: FDA-Public Use
  Company Number: FR-CELGENEUS-056-50794-10061333

PATIENT
  Sex: Male
  Weight: 81 kg

DRUGS (10)
  1. VIDAZA [Suspect]
     Route: 050
     Dates: start: 20100520, end: 20100523
  2. VIDAZA [Suspect]
     Route: 058
     Dates: start: 20100413
  3. REVLIMID [Suspect]
     Route: 048
     Dates: start: 20100520, end: 20100522
  4. REVLIMID [Suspect]
     Route: 048
     Dates: start: 20100413
  5. VERCYTE [Concomitant]
     Route: 065
     Dates: start: 19990203, end: 20100325
  6. PURINETHOL [Concomitant]
     Indication: PRODUCT USED FOR UNKNOWN INDICATION
     Route: 065
     Dates: start: 20100521, end: 20100524
  7. HYDREA [Concomitant]
     Indication: PRODUCT USED FOR UNKNOWN INDICATION
     Route: 065
     Dates: start: 20100521, end: 20100524
  8. LASIX [Concomitant]
     Indication: HYPERTENSION
     Route: 065
  9. LODOZ [Concomitant]
     Indication: HYPERTENSION
     Route: 065
  10. XALATAN [Concomitant]
     Indication: GLAUCOMA
     Route: 065

REACTIONS (1)
  - CEREBRAL HAEMORRHAGE [None]
